FAERS Safety Report 7333965-9 (Version None)
Quarter: 2011Q1

REPORT INFORMATION
  Report Type: 
  Country: None (occurrence: None)
  Receive Date: 20110302
  Receipt Date: 20110302
  Transmission Date: 20110831
  Serious: No
  Sender: FDA-Public Use
  Company Number: None

PATIENT
  Age: 73 Year
  Sex: Female
  Weight: 61.2356 kg

DRUGS (3)
  1. ATENOLOL [Suspect]
     Dosage: 50 MG. DAILY
     Dates: start: 20110220
  2. ATENOLOL [Suspect]
     Dosage: 50 MG. DAILY
     Dates: start: 20110221
  3. BENICAR [Suspect]
     Indication: HYPERTENSION
     Dosage: 40 MG. DAILY DAILY FOR YEARS

REACTIONS (1)
  - RASH [None]
